FAERS Safety Report 6367416-8 (Version None)
Quarter: 2009Q3

REPORT INFORMATION
  Report Type: 
  Country: None (occurrence: None)
  Receive Date: 20090921
  Receipt Date: 20090916
  Transmission Date: 20100115
  Serious: Yes (Hospitalization)
  Sender: FDA-Public Use
  Company Number: A0808056A

PATIENT
  Age: 50 Year
  Sex: Female
  Weight: 81.8 kg

DRUGS (6)
  1. WELLBUTRIN SR [Suspect]
     Indication: DRUG USE FOR UNKNOWN INDICATION
     Dosage: 150MG TWICE PER DAY
     Route: 048
  2. KADIAN [Suspect]
     Dosage: 30MG TWICE PER DAY
     Route: 048
     Dates: start: 19990101
  3. EFFEXOR XR [Suspect]
     Indication: DRUG USE FOR UNKNOWN INDICATION
     Dosage: 150MG PER DAY
     Route: 048
  4. HALDOL [Suspect]
     Indication: DRUG USE FOR UNKNOWN INDICATION
     Dosage: 15MG AT NIGHT
     Route: 048
  5. BACLOFEN [Suspect]
     Dosage: 10MG SIX TIMES PER DAY
     Route: 048
  6. NORCO [Suspect]
     Indication: DRUG USE FOR UNKNOWN INDICATION
     Route: 048

REACTIONS (1)
  - RESPIRATORY DEPRESSION [None]
